FAERS Safety Report 15254097 (Version 1)
Quarter: 2018Q3

REPORT INFORMATION
  Report Type: Spontaneous
  Country: US (occurrence: US)
  Receive Date: 20180808
  Receipt Date: 20180808
  Transmission Date: 20181010
  Serious: Yes (Life-Threatening, Other)
  Sender: FDA-Public Use
  Company Number: US-ZYDUS-021079

PATIENT
  Age: 22 Day
  Sex: Female
  Weight: .55 kg

DRUGS (5)
  1. PHENOBARBITAL. [Concomitant]
     Active Substance: PHENOBARBITAL
     Indication: CONVULSION NEONATAL
     Route: 065
  2. PYRIDOXINE [Concomitant]
     Active Substance: PYRIDOXINE
     Indication: CONVULSION NEONATAL
     Route: 065
  3. TOPIRAMATE. [Suspect]
     Active Substance: TOPIRAMATE
     Indication: CONVULSION NEONATAL
     Route: 048
  4. LEVETIRACETAM. [Suspect]
     Active Substance: LEVETIRACETAM
     Indication: CONVULSION NEONATAL
     Route: 065
  5. FOSPHENYTOIN [Concomitant]
     Active Substance: FOSPHENYTOIN
     Indication: CONVULSION NEONATAL
     Route: 065

REACTIONS (7)
  - Leukocytosis [Unknown]
  - Haematochezia [Unknown]
  - Necrotising enterocolitis neonatal [Unknown]
  - Drug ineffective [Unknown]
  - C-reactive protein increased [Unknown]
  - Abdominal distension [Unknown]
  - Acidosis [Unknown]
